FAERS Safety Report 15861819 (Version 7)
Quarter: 2021Q4

REPORT INFORMATION
  Report Type: Spontaneous
  Country: US (occurrence: US)
  Receive Date: 20190124
  Receipt Date: 20211230
  Transmission Date: 20220303
  Serious: No
  Sender: FDA-Public Use
  Company Number: US-PFIZER INC-2016561436

PATIENT
  Age: 88 Year
  Sex: Female

DRUGS (11)
  1. TOVIAZ [Suspect]
     Active Substance: FESOTERODINE FUMARATE
     Indication: Hypertonic bladder
     Dosage: 8 MG, 1X/DAY
     Route: 048
     Dates: start: 20160527
  2. ALLOPURINOL [Concomitant]
     Active Substance: ALLOPURINOL
     Dosage: 200 MG, 1X/DAY
     Route: 048
  3. GLUCOTROL [Concomitant]
     Active Substance: GLIPIZIDE
     Dosage: 5 MG, 1X/DAY (ONCE DAILY WITH BREAKFAST)
     Route: 048
     Dates: start: 20160801
  4. ALBUTEROL\IPRATROPIUM [Concomitant]
     Active Substance: ALBUTEROL\IPRATROPIUM
     Indication: Wheezing
     Dosage: UNK, AS NEEDED (IPRATROPIUM: 0.5MG/ALBUTEROL: 3MG)/(2.5 MG BASE)/3 ML INHALATION SOLUTION NEBUL
     Route: 055
     Dates: start: 20160710
  5. LEVOTHYROXINE [Concomitant]
     Active Substance: LEVOTHYROXINE
     Dosage: 75 UG, 1X/DAY
     Route: 048
     Dates: start: 20160801
  6. METFORMIN [Concomitant]
     Active Substance: METFORMIN HYDROCHLORIDE
     Dosage: 1500 MG, DAILY (TAKE 2 TABLETS BY MOUTH EVERY MORNING ARID 1 TABLET EVERY EVENING)
     Route: 048
     Dates: start: 20160804
  7. MECLIZINE HYDROCHLORIDE [Concomitant]
     Active Substance: MECLIZINE HYDROCHLORIDE
     Indication: Hypertonic bladder
     Dosage: UNK
  8. OMEPRAZOLE [Concomitant]
     Active Substance: OMEPRAZOLE
     Dosage: 40 MG, 1X/DAY (TAKE 1 CAPSULE BY MOUTH ONCE A DAY BEFORE A MEAL)
     Route: 048
     Dates: start: 20160804
  9. PRAVASTATIN [Concomitant]
     Active Substance: PRAVASTATIN
     Dosage: 40 MG, 1X/DAY
     Route: 048
     Dates: start: 20160804
  10. TRAMADOL [Concomitant]
     Active Substance: TRAMADOL
     Dosage: 50 MG, AS NEEDED (TAKE 1 TABLET BY ORAL ROUTE 2 TIMES A DAY AS NEEDED)
     Route: 048
     Dates: start: 20150923
  11. VITAMIN D3 [Concomitant]
     Active Substance: CHOLECALCIFEROL
     Dosage: 1000 IU, DAILY
     Route: 048
     Dates: start: 20141230

REACTIONS (3)
  - Therapeutic product effect incomplete [Unknown]
  - Dry mouth [Not Recovered/Not Resolved]
  - Gait disturbance [Unknown]
